FAERS Safety Report 22069188 (Version 9)
Quarter: 2024Q3

REPORT INFORMATION
  Report Type: Spontaneous
  Country: US (occurrence: US)
  Receive Date: 20230307
  Receipt Date: 20240906
  Transmission Date: 20241016
  Serious: Yes (Hospitalization, Other)
  Sender: PFIZER
  Company Number: US-PFIZER INC-PV202300040101

PATIENT
  Age: 76 Year
  Sex: Female
  Weight: 72.562 kg

DRUGS (2)
  1. IBRANCE [Suspect]
     Active Substance: PALBOCICLIB
     Indication: Breast cancer metastatic
     Dosage: 125 MG, CYCLIC (ONCE A DAY FOR 21 DAYS ON, 7 DAYS OFF)/125 MG TABLET 21 DAYS ON 7 DAYS OFF
     Route: 048
  2. LETROZOLE [Concomitant]
     Active Substance: LETROZOLE
     Dosage: UNK

REACTIONS (11)
  - Cardiac failure congestive [Not Recovered/Not Resolved]
  - COVID-19 [Recovered/Resolved]
  - Fatigue [Not Recovered/Not Resolved]
  - Weight decreased [Recovered/Resolved]
  - Confusional state [Not Recovered/Not Resolved]
  - Tooth extraction [Unknown]
  - Urticaria [Recovered/Resolved]
  - Depressed mood [Recovered/Resolved]
  - Hypoacusis [Unknown]
  - Blood glucose increased [Unknown]
  - Confusional state [Unknown]
